FAERS Safety Report 20388316 (Version 1)
Quarter: 2022Q1

REPORT INFORMATION
  Report Type: Report from Study
  Country: US (occurrence: US)
  Receive Date: 20220128
  Receipt Date: 20220128
  Transmission Date: 20220423
  Serious: No
  Sender: FDA-Public Use
  Company Number: US-ACADIA PHARMACEUTICALS INC.-ACA-2022-PIM-000036

PATIENT
  Sex: Male

DRUGS (36)
  1. NUPLAZID [Suspect]
     Active Substance: PIMAVANSERIN TARTRATE
     Indication: Parkinson^s disease psychosis
     Dosage: 34 MILLIGRAM, QD
     Route: 065
  2. NUPLAZID [Suspect]
     Active Substance: PIMAVANSERIN TARTRATE
     Indication: Hallucination
  3. NUPLAZID [Suspect]
     Active Substance: PIMAVANSERIN TARTRATE
     Indication: Delusion
  4. PANTOPRAZOLE [Concomitant]
     Active Substance: PANTOPRAZOLE
     Dosage: 40 MILLIGRAM, 1 TABLET WITH BREAKFAST AND DINNER
     Route: 048
  5. POTASSIUM CHLORIDE [Concomitant]
     Active Substance: POTASSIUM CHLORIDE
     Dosage: 10 MEQ, 2 TABLETS EVERYDAY
     Route: 048
  6. PRAVASTATIN [Concomitant]
     Active Substance: PRAVASTATIN
     Dosage: 20 MILLIGRAM, QD AT BEDTIME
     Route: 048
  7. PROMETHAZINE [Concomitant]
     Active Substance: PROMETHAZINE HYDROCHLORIDE
     Indication: Nausea
     Dosage: 25 MG TOPICAL SYRINGE, USE 1/2-1SYRINGE FULL EVERY 6 HOURS AS NEEDED
     Route: 061
  8. PROMETHAZINE [Concomitant]
     Active Substance: PROMETHAZINE HYDROCHLORIDE
     Indication: Vomiting
  9. QUETIAPINE [Concomitant]
     Active Substance: QUETIAPINE
     Dosage: 25 MILLIGRAM, BID
     Route: 048
  10. SILDENAFIL [Concomitant]
     Active Substance: SILDENAFIL
     Indication: Pulmonary hypertension
     Dosage: 20 MILLIGRAM, QD
     Route: 048
  11. TEMAZEPAM [Concomitant]
     Active Substance: TEMAZEPAM
     Dosage: 15 MILLIGRAM, QD, AT BEDTIME
     Route: 048
  12. TIZANIDINE [Concomitant]
     Active Substance: TIZANIDINE
     Indication: Muscle spasms
     Dosage: 2 MG, 1 TABLET TID AFTER MEAL AND 1 AT HS
  13. TOLTERODINE [Concomitant]
     Active Substance: TOLTERODINE
     Dosage: 2 MG, 1 TAB EVERY NIGHT AT BEDTIME FOR 2 WEEKS THEN TAKE 1 TABLET TWICE DAILY
  14. TRAMADOL [Concomitant]
     Active Substance: TRAMADOL
     Indication: Pain
     Dosage: 50 MG, TAKE ONE TAB EVERY 4 HOUR WITH 2 TYLENOL AS NEEDED
     Route: 048
  15. TRANDOLAPRIL [Concomitant]
     Active Substance: TRANDOLAPRIL
     Dosage: 4 MILLIGRAM, QD
  16. TRIAMCINOLONE ACETONIDE [Concomitant]
     Active Substance: TRIAMCINOLONE ACETONIDE
     Dosage: 0.1% CREAM; APPLY A THIN LAYER TO THE AFFECTED AREA 2 TIMES PER DAY
     Route: 061
  17. WARFARIN [Concomitant]
     Active Substance: WARFARIN
     Dosage: 5 MILLIGRAM, QD
     Route: 048
  18. ZYRTEC [Concomitant]
     Active Substance: CETIRIZINE HYDROCHLORIDE
     Dosage: 1 DAILY
  19. AMLODIPINE [Concomitant]
     Active Substance: AMLODIPINE BESYLATE
     Dosage: 5 MILLIGRAM, QD
     Route: 048
  20. AZELASTINE [Concomitant]
     Active Substance: AZELASTINE
     Dosage: 137 MCG(0.1%) NASAL SPRAY, 2 SPRAYS TWICE A DAY
     Route: 045
  21. BISACODYL [Concomitant]
     Active Substance: BISACODYL
     Dosage: INSERT 1 SUPPOSITORY EVERY DAY
     Route: 054
  22. BISOPROLOL FUMARATE [Concomitant]
     Active Substance: BISOPROLOL FUMARATE
     Dosage: 10 MILLIGRAM, QD
     Route: 048
  23. CARBIDOPA\LEVODOPA [Concomitant]
     Active Substance: CARBIDOPA\LEVODOPA
     Dosage: 10-100MG; TAKE 1 TAB 3 TIMES A DAY
     Route: 048
  24. CARBIDOPA\LEVODOPA [Concomitant]
     Active Substance: CARBIDOPA\LEVODOPA
     Dosage: 25-100MG; TAKE 1 TAB QD AT NOON
     Route: 048
  25. CARBIDOPA\LEVODOPA [Concomitant]
     Active Substance: CARBIDOPA\LEVODOPA
     Dosage: 25-250MG; TAKE 1 TAB TID WITH MEALS
     Route: 048
  26. CARBIDOPA\LEVODOPA [Concomitant]
     Active Substance: CARBIDOPA\LEVODOPA
     Dosage: 50-200MG EXTENDED RELASE TABLET; 1 TAB BID
     Route: 048
  27. CEFDINIR [Concomitant]
     Active Substance: CEFDINIR
     Dosage: 300 MILLIGRAM, EVERY 12 HOURS FOR 7 DAYS
     Route: 048
  28. CLONAZEPAM [Concomitant]
     Active Substance: CLONAZEPAM
     Dosage: 0.5 MG ; EVERYDAY AT BEDTIME
     Route: 048
  29. DICLOFENAC [Concomitant]
     Active Substance: DICLOFENAC
     Dosage: 1% GEL; APPLY 4 GRAMS TO AFFECTED AREA FOUR TIMES DAILY
     Route: 061
  30. DULOXETINE [Concomitant]
     Active Substance: DULOXETINE
     Dosage: 30 MILLIGRAM, QD
     Route: 048
  31. DULOXETINE [Concomitant]
     Active Substance: DULOXETINE
     Dosage: 60 MILLIGRAM, QD
     Route: 048
  32. FAMOTIDINE [Concomitant]
     Active Substance: FAMOTIDINE
     Dosage: 40 MILLIGRAM, QD, AT BEDTIME
     Route: 048
  33. FUROSEMIDE [Concomitant]
     Active Substance: FUROSEMIDE
     Dosage: 40 MILLIGRAM, QD, IN MORNING
     Route: 048
  34. MINERALS\VITAMINS [Concomitant]
     Active Substance: MINERALS\VITAMINS
     Dosage: BID
  35. IPRATROPIUM BROMIDE [Concomitant]
     Active Substance: IPRATROPIUM BROMIDE
     Dosage: 42 MCG (0.06%) 2 SPRAYS 3 TIMES A DAY
     Route: 045
  36. ONDANSETRON [Concomitant]
     Active Substance: ONDANSETRON
     Dosage: 4 MG DISINTEGRATING TABLET; PLACE 1 TABLET EVERY 4-6 HOURS BY TRANSLINGUAL ROUTE AS NEEDED
     Route: 050

REACTIONS (3)
  - Insomnia [Unknown]
  - Restlessness [Unknown]
  - Hallucination [Unknown]
